FAERS Safety Report 5964508-X (Version None)
Quarter: 2008Q4

REPORT INFORMATION
  Report Type: 
  Country: None (occurrence: None)
  Receive Date: 20081125
  Receipt Date: 20081120
  Transmission Date: 20090506
  Serious: Yes (Hospitalization)
  Sender: FDA-Public Use
  Company Number: CO-JNJFOC-20081105569

PATIENT
  Sex: Female

DRUGS (4)
  1. SPORANOX [Suspect]
     Indication: HISTOPLASMOSIS
     Route: 065
  2. STAVUDINE [Concomitant]
     Indication: HIV INFECTION
     Route: 065
  3. LAMIVUDINE [Concomitant]
     Indication: HIV INFECTION
     Route: 065
  4. EFAVIRENZ [Concomitant]
     Indication: HIV INFECTION
     Route: 065

REACTIONS (1)
  - GRAND MAL CONVULSION [None]
